FAERS Safety Report 8314566-2 (Version None)
Quarter: 2012Q2

REPORT INFORMATION
  Report Type: 
  Country: None (occurrence: None)
  Receive Date: 20120426
  Receipt Date: 20120418
  Transmission Date: 20120825
  Serious: Yes (Hospitalization)
  Sender: FDA-Public Use
  Company Number: US-ASTRAZENECA-2012SE25469

PATIENT
  Age: 84 Year
  Sex: Male
  Weight: 98.9 kg

DRUGS (4)
  1. SIMVASTATIN [Concomitant]
     Indication: BLOOD CHOLESTEROL ABNORMAL
  2. SYMBICORT [Suspect]
     Indication: CHRONIC OBSTRUCTIVE PULMONARY DISEASE
     Dosage: 160 MCG ONE PUFF DAILY
     Route: 055
     Dates: start: 20120201
  3. VITAMIN TAB [Concomitant]
  4. LOSARTAN POTASSIUM [Concomitant]
     Indication: BLOOD PRESSURE

REACTIONS (5)
  - HYPERTENSION [None]
  - HEADACHE [None]
  - OFF LABEL USE [None]
  - HERPES ZOSTER [None]
  - BLOOD CHOLESTEROL INCREASED [None]
